FAERS Safety Report 10799645 (Version 1)
Quarter: 2015Q1

REPORT INFORMATION
  Report Type: Report from Study
  Country: US (occurrence: US)
  Receive Date: 20150216
  Receipt Date: 20150216
  Transmission Date: 20150721
  Serious: No
  Sender: FDA-Public Use
  Company Number: US-ABBVIE-14K-163-1242605-00

PATIENT
  Age: 21 Year
  Sex: Female

DRUGS (7)
  1. TOPAMAX [Concomitant]
     Active Substance: TOPIRAMATE
     Indication: POSTURAL ORTHOSTATIC TACHYCARDIA SYNDROME
  2. HUMIRA [Suspect]
     Active Substance: ADALIMUMAB
     Dates: start: 201310
  3. AMBIEN [Concomitant]
     Active Substance: ZOLPIDEM TARTRATE
     Indication: FIBROMYALGIA
  4. PROVIGIL [Concomitant]
     Active Substance: MODAFINIL
     Indication: FATIGUE
  5. TRAMADOL [Concomitant]
     Active Substance: TRAMADOL
     Indication: FIBROMYALGIA
  6. HUMIRA [Suspect]
     Active Substance: ADALIMUMAB
     Indication: ANKYLOSING SPONDYLITIS
     Dates: start: 2013, end: 201310
  7. LEXAPRO [Concomitant]
     Active Substance: ESCITALOPRAM OXALATE
     Indication: POSTURAL ORTHOSTATIC TACHYCARDIA SYNDROME

REACTIONS (6)
  - Myalgia [Not Recovered/Not Resolved]
  - Wound [Not Recovered/Not Resolved]
  - Animal bite [Unknown]
  - Urticaria [Unknown]
  - Muscle contusion [Not Recovered/Not Resolved]
  - Skin infection [Recovered/Resolved]

NARRATIVE: CASE EVENT DATE: 201310
